FAERS Safety Report 4805703-2 (Version None)
Quarter: 2005Q4

REPORT INFORMATION
  Report Type: 
  Country: None (occurrence: None)
  Receive Date: 20051021
  Receipt Date: 20050921
  Transmission Date: 20060501
  Serious: Yes (Hospitalization)
  Sender: FDA-Public Use
  Company Number: JP-ROCHE-418439

PATIENT
  Age: 77 Year
  Sex: Male

DRUGS (8)
  1. PANALDINE [Suspect]
     Indication: THROMBOSIS PROPHYLAXIS
     Dosage: INDICATION ALSO REPORTED AS STENT PLACEMENT AND ANGINA PECTORIS.
     Route: 048
     Dates: start: 20050819, end: 20050905
  2. ISOSORBIDE MONONITRATE [Concomitant]
     Indication: ANGINA PECTORIS
     Route: 048
  3. SIGMART [Concomitant]
     Indication: ANGINA PECTORIS
     Route: 048
  4. SELOKEN [Concomitant]
     Indication: ANGINA PECTORIS
     Route: 048
  5. CONIEL [Concomitant]
     Indication: HYPERTENSION
     Route: 048
  6. ASPIRIN [Concomitant]
     Route: 048
  7. MEVALOTIN [Concomitant]
     Indication: HYPERLIPIDAEMIA
     Route: 048
  8. FRANDOL [Concomitant]
     Indication: ANGINA PECTORIS
     Route: 046

REACTIONS (6)
  - COUGH [None]
  - EOSINOPHILIA [None]
  - HEPATIC ENZYME INCREASED [None]
  - HEPATIC FUNCTION ABNORMAL [None]
  - RASH GENERALISED [None]
  - WHITE BLOOD CELL COUNT INCREASED [None]
